FAERS Safety Report 10073036 (Version 2)
Quarter: 2014Q2

REPORT INFORMATION
  Report Type: Spontaneous
  Country: IT (occurrence: IT)
  Receive Date: 20140411
  Receipt Date: 20140418
  Transmission Date: 20141212
  Serious: Yes (Other)
  Sender: FDA-Public Use
  Company Number: IT-PFIZER INC-2014098893

PATIENT
  Age: 36 Year
  Sex: Male
  Weight: 105 kg

DRUGS (3)
  1. RAMIPRIL [Suspect]
     Indication: HYPERTENSION
     Dosage: 10 MG, DAILY
     Route: 048
     Dates: start: 20140224, end: 20140327
  2. ADALAT CRONO [Concomitant]
     Dosage: UNK
  3. ANTRA [Concomitant]
     Dosage: UNK

REACTIONS (1)
  - Hypertensive crisis [Unknown]
